FAERS Safety Report 6551069-X (Version None)
Quarter: 2010Q1

REPORT INFORMATION
  Report Type: 
  Country: None (occurrence: None)
  Receive Date: 20100122
  Receipt Date: 20100122
  Transmission Date: 20100710
  Serious: No
  Sender: FDA-Public Use
  Company Number: None

PATIENT
  Age: 46 Year
  Sex: Male
  Weight: 74.8435 kg

DRUGS (1)
  1. LEVAQUIN [Suspect]
     Indication: BENIGN PROSTATIC HYPERPLASIA
     Dosage: 250 MG DAILY PO
     Route: 048
     Dates: start: 20090312, end: 20090402

REACTIONS (11)
  - HEADACHE [None]
  - INSOMNIA [None]
  - MEMORY IMPAIRMENT [None]
  - MUSCLE TWITCHING [None]
  - NEUROPATHY PERIPHERAL [None]
  - PANIC ATTACK [None]
  - PARAESTHESIA [None]
  - RENAL CYST [None]
  - STEATORRHOEA [None]
  - TINNITUS [None]
  - VITREOUS FLOATERS [None]
